FAERS Safety Report 8827239 (Version 2)
Quarter: 2012Q4

REPORT INFORMATION
  Report Type: Report from Study
  Country: US (occurrence: US)
  Receive Date: 20121005
  Receipt Date: 20121018
  Transmission Date: 20130627
  Serious: Yes (Hospitalization, Other)
  Sender: FDA-Public Use
  Company Number: US-ABBOTT-12P-163-0988972-00

PATIENT
  Age: 26 Year
  Sex: Male

DRUGS (4)
  1. HUMIRA [Suspect]
     Indication: CROHN^S DISEASE
     Dosage: 80 MG EVERY OTHER WEEK ^ TWO PENS:
  2. METHOTREXATE [Suspect]
     Indication: PRODUCT USED FOR UNKNOWN INDICATION
  3. FLAGYL [Concomitant]
     Indication: CROHN^S DISEASE
     Route: 048
  4. OXYCONTIN [Concomitant]
     Indication: PAIN
     Dosage: 2-3 tablets every 4 hours for pain
     Route: 048

REACTIONS (4)
  - Enterocutaneous fistula [Recovering/Resolving]
  - Impaired healing [Recovering/Resolving]
  - Pain [Not Recovered/Not Resolved]
  - Fistula discharge [Not Recovered/Not Resolved]
